FAERS Safety Report 9886687 (Version 2)
Quarter: 2014Q1

REPORT INFORMATION
  Report Type: Report from Study
  Country: BR (occurrence: BR)
  Receive Date: 20140210
  Receipt Date: 20140310
  Transmission Date: 20141002
  Serious: Yes (Other)
  Sender: FDA-Public Use
  Company Number: PHHY2014BR016192

PATIENT
  Age: 48 Year
  Sex: Female
  Weight: 98 kg

DRUGS (6)
  1. TRILEPTAL [Suspect]
     Indication: CONVULSION
     Dosage: 1 DF, TID (MORNING, AFTERNOOS AND NIGHT)
     Route: 048
  2. TRILEPTAL [Suspect]
     Indication: INFECTION PARASITIC
     Dosage: 02 DF, DAILY
     Route: 048
  3. TRILEPTAL [Suspect]
     Dosage: 01 DF, DAILY (600 MG)
     Route: 048
  4. METFORMIN [Concomitant]
     Indication: BLOOD INSULIN INCREASED
     Dosage: UNK UKN, UNK
  5. LOSARTAN [Concomitant]
     Indication: BLOOD PRESSURE ABNORMAL
     Dosage: UNK UKN, UNK
  6. ATENOLOL [Concomitant]
     Indication: BLOOD PRESSURE ABNORMAL
     Dosage: UNK UKN, UNK

REACTIONS (3)
  - Cerebral calcification [Unknown]
  - Anticonvulsant drug level decreased [Unknown]
  - Convulsion [Recovering/Resolving]
